FAERS Safety Report 4787448-0 (Version None)
Quarter: 2005Q4

REPORT INFORMATION
  Report Type: 
  Country: None (occurrence: None)
  Receive Date: 20051003
  Receipt Date: 20050920
  Transmission Date: 20060501
  Serious: Yes (Life-Threatening)
  Sender: FDA-Public Use
  Company Number: 05H-124-0302496-00

PATIENT
  Age: 25 Year
  Sex: Female
  Weight: 45 kg

DRUGS (8)
  1. PENTOTHAL SODIUM INJECTION (PENTOTHAL INJECTION) (THIOPENTAL SODIUM) ( [Suspect]
     Indication: INDUCTION OF ANAESTHESIA
     Dosage: 150 MG, INTRAVENOUS
     Route: 042
     Dates: start: 20050915, end: 20050915
  2. ISONIAZID [Concomitant]
  3. RIFAMPICIN [Concomitant]
  4. ETHAMBUTOL (ETHAMBUTOL) [Concomitant]
  5. PYRAZINAMIDE [Concomitant]
  6. ATRACURIUM BESYLATE [Concomitant]
  7. POTASSIUM CHLORIDE [Concomitant]
  8. SODIUM CHLORIDE [Concomitant]

REACTIONS (2)
  - PROCEDURAL COMPLICATION [None]
  - VENTRICULAR FIBRILLATION [None]
